FAERS Safety Report 15377551 (Version 1)
Quarter: 2018Q3

REPORT INFORMATION
  Report Type: Spontaneous
  Country: US (occurrence: US)
  Receive Date: 20180906
  Receipt Date: 20180906
  Transmission Date: 20181010
  Serious: Yes (Death)
  Sender: FDA-Public Use
  Company Number: None

PATIENT
  Age: 63 Year
  Sex: Female
  Weight: 58.5 kg

DRUGS (9)
  1. VOTRIENT [Suspect]
     Active Substance: PAZOPANIB HYDROCHLORIDE
     Indication: UTERINE LEIOMYOMA
     Route: 048
     Dates: start: 20170502, end: 20180108
  2. MAGNESIUM GLUCONATE [Concomitant]
     Active Substance: MAGNESIUM GLUCONATE
  3. COENZYME Q10 [Concomitant]
     Active Substance: UBIDECARENONE
  4. MULTIVITAMIN [Concomitant]
     Active Substance: VITAMINS
  5. TEA [Concomitant]
     Active Substance: TEA LEAF
  6. VITAMIN D3 [Concomitant]
     Active Substance: CHOLECALCIFEROL
  7. LOVENOX [Concomitant]
     Active Substance: ENOXAPARIN SODIUM
  8. GLUTAMINE [Concomitant]
     Active Substance: GLUTAMINE
  9. PROBIOTIC [Concomitant]
     Active Substance: PROBIOTICS NOS

REACTIONS (1)
  - Death [None]

NARRATIVE: CASE EVENT DATE: 20180108
